FAERS Safety Report 18473746 (Version 1)
Quarter: 2020Q4

REPORT INFORMATION
  Report Type: Spontaneous
  Country: FR (occurrence: FR)
  Receive Date: 20201106
  Receipt Date: 20201106
  Transmission Date: 20210114
  Serious: Yes (Hospitalization)
  Sender: FDA-Public Use
  Company Number: FR-PFIZER INC-2020426331

PATIENT
  Age: 45 Year
  Sex: Male
  Weight: 75 kg

DRUGS (6)
  1. TAZOCILLINE [Suspect]
     Active Substance: PIPERACILLIN SODIUM\TAZOBACTAM SODIUM
     Indication: ESCHAR
     Dosage: 12 G, DAILY
     Route: 042
     Dates: start: 20200914, end: 20201002
  2. FRAXIPARINE [Concomitant]
     Active Substance: NADROPARIN CALCIUM
     Dosage: UNK
  3. DALACINE [Suspect]
     Active Substance: CLINDAMYCIN
     Indication: ESCHAR
     Dosage: 1800 MG, DAILY
     Route: 048
     Dates: start: 20200914, end: 20201002
  4. ROCEPHINE [Suspect]
     Active Substance: CEFTRIAXONE SODIUM
     Indication: LARGE INTESTINE INFECTION
     Dosage: 2 G, 1X/DAY
     Route: 042
     Dates: start: 20200909, end: 20200913
  5. FLAGYL [Suspect]
     Active Substance: METRONIDAZOLE\METRONIDAZOLE HYDROCHLORIDE
     Indication: LARGE INTESTINE INFECTION
     Dosage: 500 MG, 3X/DAY
     Route: 048
     Dates: start: 20200909, end: 20200913
  6. DEBRIDAT [TRIMEBUTINE MALEATE] [Concomitant]
     Active Substance: TRIMEBUTINE MALEATE
     Dosage: UNK

REACTIONS (4)
  - Rash [Recovered/Resolved]
  - Prothrombin time shortened [Recovering/Resolving]
  - Neutropenia [Recovered/Resolved]
  - Pyrexia [Recovered/Resolved]

NARRATIVE: CASE EVENT DATE: 20201001
